FAERS Safety Report 4546174-3 (Version None)
Quarter: 2005Q1

REPORT INFORMATION
  Report Type: 
  Country: None (occurrence: None)
  Receive Date: 20050103
  Receipt Date: 20041223
  Transmission Date: 20050727
  Serious: Yes (Hospitalization)
  Sender: FDA-Public Use
  Company Number: 2004118169

PATIENT
  Age: 16 Year
  Sex: Female

DRUGS (2)
  1. CLINDAMYCIN HYDROCHLORIDE [Suspect]
     Indication: ANTIBACTERIAL PROPHYLAXIS
     Dosage: 900 MG (300 MG, DAILY), ORAL
     Route: 048
  2. DICLOFENAC (DICLOFENAC SODIUM) [Suspect]
     Indication: POSTOPERATIVE ANALGESIA
     Dosage: 150 MG (75 MG, DAILY), ORAL
     Route: 048

REACTIONS (5)
  - CLOSTRIDIAL INFECTION [None]
  - LARGE INTESTINE PERFORATION [None]
  - PERITONITIS [None]
  - PLATELET COUNT INCREASED [None]
  - PROTHROMBIN TIME PROLONGED [None]
